FAERS Safety Report 4661566-X (Version None)
Quarter: 2005Q2

REPORT INFORMATION
  Report Type: 
  Country: None (occurrence: None)
  Receive Date: 20050513
  Receipt Date: 20050316
  Transmission Date: 20051028
  Serious: Yes (Life-Threatening, Hospitalization, Disabling, Other)
  Sender: FDA-Public Use
  Company Number: US-MERCK-0503USA03063

PATIENT
  Age: 76 Year
  Sex: Female
  Weight: 55 kg

DRUGS (18)
  1. ZOCOR [Suspect]
     Indication: BLOOD CHOLESTEROL INCREASED
     Route: 048
     Dates: end: 20040820
  2. ZOCOR [Suspect]
     Indication: CORONARY ARTERY DISEASE
     Route: 048
     Dates: end: 20040820
  3. ALDACTONE [Suspect]
     Indication: CARDIAC FAILURE CONGESTIVE
     Route: 048
     Dates: end: 20040820
  4. LANOXIN [Concomitant]
     Indication: CARDIAC FAILURE CONGESTIVE
     Route: 065
     Dates: end: 20040820
  5. LANOXIN [Concomitant]
     Route: 065
     Dates: start: 20040801
  6. ASPIRIN [Concomitant]
     Route: 065
     Dates: end: 20040820
  7. ASPIRIN [Concomitant]
     Route: 065
     Dates: start: 20040801
  8. DIOVAN [Suspect]
     Indication: CARDIAC FAILURE CONGESTIVE
     Route: 065
     Dates: end: 20040820
  9. ALLOPURINOL [Concomitant]
     Route: 065
     Dates: end: 20040820
  10. ZETIA [Concomitant]
     Route: 048
     Dates: end: 20040820
  11. LASIX [Concomitant]
     Route: 065
     Dates: end: 20040820
  12. LASIX [Concomitant]
     Route: 065
     Dates: start: 20040801
  13. ISORDIL [Concomitant]
     Route: 065
     Dates: end: 20040820
  14. ISORDIL [Concomitant]
     Route: 065
     Dates: start: 20040801
  15. COREG [Concomitant]
     Indication: CARDIAC FAILURE CONGESTIVE
     Route: 065
     Dates: end: 20040820
  16. COREG [Concomitant]
     Route: 065
     Dates: start: 20040801
  17. FOLIC ACID [Concomitant]
     Route: 065
     Dates: end: 20040820
  18. FOLIC ACID [Concomitant]
     Route: 065
     Dates: start: 20040801

REACTIONS (7)
  - ANAEMIA [None]
  - HEPATITIS [None]
  - ORAL INTAKE REDUCED [None]
  - RENAL FAILURE ACUTE [None]
  - RHABDOMYOLYSIS [None]
  - STOMATITIS [None]
  - TOOTH DISORDER [None]
